FAERS Safety Report 5700029-7 (Version None)
Quarter: 2008Q2

REPORT INFORMATION
  Report Type: 
  Country: None (occurrence: None)
  Receive Date: 20080410
  Receipt Date: 20080327
  Transmission Date: 20081010
  Serious: Yes (Hospitalization, Disabling, Congenital Anomaly)
  Sender: FDA-Public Use
  Company Number: JP-ASTRAZENECA-2001SE01267

PATIENT
  Sex: Male
  Weight: 1 kg

DRUGS (5)
  1. BLOPRESS TABLETS 4 [Suspect]
     Indication: HYPERTENSION
     Route: 064
     Dates: start: 19981010
  2. NEORAL [Suspect]
     Route: 064
  3. IMURAN [Concomitant]
     Route: 064
  4. MEDROL [Concomitant]
     Route: 064
  5. EPOGIN [Concomitant]
     Route: 064

REACTIONS (12)
  - CONGENITAL ANOMALY [None]
  - DRUG EXPOSURE DURING PREGNANCY [None]
  - NEONATAL ASPHYXIA [None]
  - NEONATAL HYPOTENSION [None]
  - NEONATAL RESPIRATORY DISTRESS SYNDROME [None]
  - NEPHROGENIC DIABETES INSIPIDUS [None]
  - OSTEOGENESIS IMPERFECTA [None]
  - PATENT DUCTUS ARTERIOSUS [None]
  - PERSISTENT FOETAL CIRCULATION [None]
  - PNEUMOTHORAX [None]
  - PULMONARY HYPOPLASIA [None]
  - RENAL FAILURE NEONATAL [None]
